FAERS Safety Report 18726436 (Version 1)
Quarter: 2021Q1

REPORT INFORMATION
  Report Type: Spontaneous
  Country: US (occurrence: US)
  Receive Date: 20210111
  Receipt Date: 20210111
  Transmission Date: 20210419
  Serious: Yes (Other)
  Sender: FDA-Public Use
  Company Number: US-CHIESI USA, INC.-US-2020CHI000698

PATIENT

DRUGS (1)
  1. ZYFLO [Suspect]
     Active Substance: ZILEUTON
     Indication: ASTHMA
     Dosage: 1200 MG, BID
     Route: 048

REACTIONS (3)
  - Cerebrovascular accident [Unknown]
  - Dysphagia [Unknown]
  - Incorrect dose administered [Unknown]
